FAERS Safety Report 9555992 (Version 1)
Quarter: 2013Q3

REPORT INFORMATION
  Report Type: Spontaneous
  Country: US (occurrence: None)
  Receive Date: 20130815
  Receipt Date: 20130815
  Transmission Date: 20140515
  Serious: Yes (Hospitalization, Other)
  Sender: FDA-Public Use
  Company Number: ADR-2013-00673

PATIENT
  Sex: Male

DRUGS (2)
  1. BACLOFEN INTRATHECAL [Suspect]
     Indication: SPINAL CORD INJURY
  2. BACLOFEN INTRATHECAL [Suspect]
     Indication: MUSCLE SPASTICITY

REACTIONS (1)
  - Nephrolithiasis [None]
